FAERS Safety Report 15257840 (Version 2)
Quarter: 2018Q3

REPORT INFORMATION
  Report Type: Spontaneous
  Country: US (occurrence: US)
  Receive Date: 20180808
  Receipt Date: 20180810
  Transmission Date: 20181010
  Serious: No
  Sender: FDA-Public Use
  Company Number: US-BIOGEN-2018BI00618765

PATIENT
  Sex: Female

DRUGS (1)
  1. TYSABRI [Suspect]
     Active Substance: NATALIZUMAB
     Indication: MULTIPLE SCLEROSIS
     Route: 065
     Dates: start: 20180730

REACTIONS (8)
  - Muscle spasms [Unknown]
  - Speech disorder [Unknown]
  - Multiple sclerosis relapse [Unknown]
  - Memory impairment [Unknown]
  - Gait disturbance [Unknown]
  - Feeling abnormal [Unknown]
  - Cognitive disorder [Unknown]
  - Bradyphrenia [Unknown]
